FAERS Safety Report 21542518 (Version 2)
Quarter: 2022Q4

REPORT INFORMATION
  Report Type: Spontaneous
  Country: GB (occurrence: GB)
  Receive Date: 20221102
  Receipt Date: 20221129
  Transmission Date: 20230113
  Serious: Yes (Disabling, Other)
  Sender: FDA-Public Use
  Company Number: None

PATIENT
  Age: 68 Year
  Sex: Male
  Weight: 126 kg

DRUGS (10)
  1. XARELTO [Suspect]
     Active Substance: RIVAROXABAN
     Indication: Product used for unknown indication
     Dosage: 20 MG
     Route: 048
  2. ASPIRIN [Concomitant]
     Active Substance: ASPIRIN
     Dosage: 75 MG, QD
     Dates: start: 20220816
  3. APIXABAN [Concomitant]
     Active Substance: APIXABAN
     Dosage: 5 MG, BID
     Dates: start: 20220826
  4. FLUCLOXACILLIN [Concomitant]
     Active Substance: FLUCLOXACILLIN
     Dosage: 500 MG, QID
     Dates: start: 20221011
  5. FUROSEMIDE [Concomitant]
     Active Substance: FUROSEMIDE
     Dosage: 40 MG, QD
     Dates: start: 20220809
  6. FLUTICASONE PROPIONATE [Concomitant]
     Active Substance: FLUTICASONE PROPIONATE
     Dosage: 125 UG, BID
     Dates: start: 20220915, end: 20221014
  7. IRBESARTAN [Concomitant]
     Active Substance: IRBESARTAN
     Dosage: 300 MG, QD
     Dates: start: 20220728
  8. TESTOSTERONE [Concomitant]
     Active Substance: TESTOSTERONE
     Dosage: 1 DF, QD
     Dates: start: 20220916
  9. TESTOSTERONE [Concomitant]
     Active Substance: TESTOSTERONE
     Dosage: 40.5 MG, QD
     Dates: start: 20220816
  10. VENTOLIN [Concomitant]
     Active Substance: ALBUTEROL SULFATE
     Dosage: 1-2 PUFFS AS REQUIRED
     Dates: start: 20220915

REACTIONS (2)
  - Blister infected [Recovering/Resolving]
  - Blister rupture [Unknown]

NARRATIVE: CASE EVENT DATE: 20220921
